FAERS Safety Report 15203324 (Version 1)
Quarter: 2018Q3

REPORT INFORMATION
  Report Type: Spontaneous
  Country: SE (occurrence: SE)
  Receive Date: 20180726
  Receipt Date: 20180726
  Transmission Date: 20181010
  Serious: Yes (Life-Threatening, Hospitalization)
  Sender: FDA-Public Use
  Company Number: SE-PFIZER INC-2018296696

PATIENT
  Age: 69 Year
  Sex: Female
  Weight: 61 kg

DRUGS (3)
  1. SERTRALINE HCL [Suspect]
     Active Substance: SERTRALINE HYDROCHLORIDE
     Indication: DEPRESSION
     Dosage: 50 MG, 1X/DAY
     Dates: start: 20160418, end: 20180514
  2. ALENDRONAT RANBAXY [Concomitant]
     Dosage: UNK
     Dates: start: 20171215
  3. CALCICHEW?D3 CITRON [Concomitant]
     Dosage: UNK
     Dates: start: 20171215

REACTIONS (8)
  - Psychomotor hyperactivity [Recovering/Resolving]
  - Muscle spasms [Recovering/Resolving]
  - Sleep disorder [Recovering/Resolving]
  - Chest pain [Recovering/Resolving]
  - Loss of consciousness [Recovering/Resolving]
  - Dizziness [Recovering/Resolving]
  - Blindness [Recovering/Resolving]
  - Pyrexia [Recovering/Resolving]

NARRATIVE: CASE EVENT DATE: 20180505
